FAERS Safety Report 8819944 (Version 2)
Quarter: 2014Q1

REPORT INFORMATION
  Report Type: Spontaneous
  Country: CZ (occurrence: CZ)
  Receive Date: 20121002
  Receipt Date: 20140324
  Transmission Date: 20141002
  Serious: Yes (Hospitalization, Other)
  Sender: FDA-Public Use
  Company Number: CZ-UCBSA-062946

PATIENT
  Age: 79 Year
  Sex: Female

DRUGS (10)
  1. CIMZIA [Suspect]
     Indication: RHEUMATOID ARTHRITIS
     Dates: start: 20050427
  2. ALENDROGEN [Concomitant]
  3. CALTRATE [Concomitant]
     Dosage: 600MG/400 IU
  4. METHOTREXATE [Concomitant]
     Dosage: 10 MG IN THE MORNING AND EVENING ON FRIDAY
  5. FOLIC ACID [Concomitant]
     Dosage: 10 MG ONCE A WEEK
  6. MEDROL [Concomitant]
     Dosage: 8 MG IN THE MORNING
  7. HYDROCHLOROTHIAZIDE [Concomitant]
     Dosage: 12.5 MG/DAY
  8. TELMISARTAN [Concomitant]
     Dosage: 80 MG IN THE EVENING
  9. AULIN [Concomitant]
     Indication: PAIN
  10. WARFARIN [Concomitant]
     Dosage: 5 MG - 6 TIMES A WEEK HALF OF TABLET AND ONCE A WHOLE TABLET

REACTIONS (4)
  - Lymphoedema [Recovering/Resolving]
  - Haematoma [Recovering/Resolving]
  - Dyspnoea [Recovering/Resolving]
  - Chest pain [Recovering/Resolving]
